FAERS Safety Report 9149309 (Version 1)
Quarter: 2013Q1

REPORT INFORMATION
  Report Type: Spontaneous
  Country: US (occurrence: None)
  Receive Date: 20130129
  Receipt Date: 20130129
  Transmission Date: 20140127
  Serious: Yes (Other)
  Sender: FDA-Public Use
  Company Number: 2013SA004102

PATIENT
  Sex: Female

DRUGS (1)
  1. MENTHOL [Suspect]
     Indication: ANALGESIC THERAPY

REACTIONS (3)
  - Application site pain [None]
  - Application site scab [None]
  - Application site pain [None]
